FAERS Safety Report 6592734-8 (Version None)
Quarter: 2010Q1

REPORT INFORMATION
  Report Type: 
  Country: None (occurrence: None)
  Receive Date: 20100212
  Receipt Date: 20100126
  Transmission Date: 20100710
  Serious: Yes (Other)
  Sender: FDA-Public Use
  Company Number: GB-1167273

PATIENT
  Age: 69 Year
  Sex: Female

DRUGS (2)
  1. BETAXOLOL HCL [Suspect]
     Indication: INTRAOCULAR PRESSURE INCREASED
     Dosage: OPHTHALMIC
     Route: 047
  2. DORZOLAMIDE [Concomitant]

REACTIONS (5)
  - ANGLE CLOSURE GLAUCOMA [None]
  - DRUG INEFFECTIVE [None]
  - EYE DISORDER [None]
  - FLAT ANTERIOR CHAMBER OF EYE [None]
  - INTRAOCULAR PRESSURE INCREASED [None]
